FAERS Safety Report 5036003-6 (Version None)
Quarter: 2006Q2

REPORT INFORMATION
  Report Type: 
  Country: None (occurrence: None)
  Receive Date: 20060526
  Receipt Date: 20060206
  Transmission Date: 20061013
  Serious: No
  Sender: FDA-Public Use
  Company Number: 220998

PATIENT
  Age: 48 Year
  Sex: Male

DRUGS (4)
  1. RAPTIVA [Suspect]
     Indication: PSORIASIS
     Dosage: 1/WEEK
     Dates: start: 20051220
  2. ASPIRIN [Concomitant]
  3. NORVASC [Concomitant]
  4. AMBIEN [Concomitant]

REACTIONS (3)
  - ERYTHEMA [None]
  - PSORIASIS [None]
  - PYREXIA [None]
